FAERS Safety Report 19674139 (Version 1)
Quarter: 2021Q3

REPORT INFORMATION
  Report Type: Spontaneous
  Country: US (occurrence: US)
  Receive Date: 20210809
  Receipt Date: 20210809
  Transmission Date: 20211014
  Serious: Yes (Hospitalization)
  Sender: FDA-Public Use
  Company Number: None

PATIENT
  Age: 82 Year
  Sex: Male

DRUGS (3)
  1. ABIRATERONE ACETATE. [Suspect]
     Active Substance: ABIRATERONE ACETATE
     Indication: METASTASES TO BONE
     Route: 048
     Dates: start: 20210114
  2. NONE LISTED [Concomitant]
  3. ABIRATERONE ACETATE. [Suspect]
     Active Substance: ABIRATERONE ACETATE
     Indication: METASTASES TO PROSTATE
     Route: 048
     Dates: start: 20210114

REACTIONS (1)
  - Blood urine present [None]

NARRATIVE: CASE EVENT DATE: 20210731
